FAERS Safety Report 7145871-3 (Version None)
Quarter: 2010Q4

REPORT INFORMATION
  Report Type: 
  Country: None (occurrence: None)
  Receive Date: 20101208
  Receipt Date: 20101202
  Transmission Date: 20110411
  Serious: Yes (Hospitalization)
  Sender: FDA-Public Use
  Company Number: B0687135A

PATIENT
  Age: 50 Year
  Sex: Male

DRUGS (7)
  1. KIVEXA [Suspect]
     Indication: HIV INFECTION
     Dosage: 1TAB PER DAY
     Route: 048
     Dates: start: 20100915, end: 20100923
  2. REYATAZ [Suspect]
     Indication: HIV INFECTION
     Dosage: 300MG PER DAY
     Route: 048
     Dates: start: 20100915, end: 20100923
  3. NORVIR [Suspect]
     Indication: HIV INFECTION
     Dosage: 100MG PER DAY
     Route: 048
     Dates: start: 20100915, end: 20100923
  4. ANSATIPINE [Suspect]
     Indication: PULMONARY TUBERCULOSIS
     Dosage: 600MG PER DAY
     Route: 048
     Dates: start: 20100824, end: 20100923
  5. PIRILENE [Suspect]
     Indication: PULMONARY TUBERCULOSIS
     Dosage: 2000MG PER DAY
     Route: 048
     Dates: start: 20100824, end: 20100923
  6. MYAMBUTOL [Concomitant]
     Indication: PULMONARY TUBERCULOSIS
     Dosage: 1200MG PER DAY
     Route: 048
     Dates: start: 20100824, end: 20100923
  7. RIMIFON [Concomitant]
     Indication: PULMONARY TUBERCULOSIS
     Dosage: 300MG PER DAY
     Route: 048
     Dates: start: 20100824, end: 20100923

REACTIONS (10)
  - ANGIOEDEMA [None]
  - DYSPHAGIA [None]
  - FEELING HOT [None]
  - LARYNGEAL OEDEMA [None]
  - ORAL DISORDER [None]
  - PHARYNGEAL INFLAMMATION [None]
  - PRURITUS [None]
  - RASH MACULO-PAPULAR [None]
  - SALIVARY HYPERSECRETION [None]
  - URTICARIA [None]
